FAERS Safety Report 5167113-0 (Version None)
Quarter: 2006Q4

REPORT INFORMATION
  Report Type: 
  Country: None (occurrence: None)
  Receive Date: 20061207
  Receipt Date: 20061127
  Transmission Date: 20070319
  Serious: Yes (Death, Hospitalization)
  Sender: FDA-Public Use
  Company Number: FR-GLAXOSMITHKLINE-B0448562A

PATIENT
  Age: 62 Year
  Sex: Male

DRUGS (5)
  1. ZANTAC [Suspect]
     Dosage: 400MG PER DAY
     Route: 042
     Dates: start: 20060705
  2. SOLU-MEDROL [Suspect]
     Dosage: 120MG PER DAY
     Route: 042
     Dates: start: 20060628, end: 20060702
  3. LOVENOX [Suspect]
     Dosage: .4ML PER DAY
     Route: 058
     Dates: start: 20060630, end: 20060630
  4. PANTOPRAZOLE SODIUM [Suspect]
     Dosage: 40MG VARIABLE DOSE
     Route: 042
     Dates: start: 20060701, end: 20060703
  5. PERFALGAN [Suspect]
     Dosage: 1G FOUR TIMES PER DAY
     Route: 042
     Dates: start: 20060629, end: 20060630

REACTIONS (5)
  - GASTRIC ULCER [None]
  - HAEMOGLOBIN DECREASED [None]
  - INTESTINAL OBSTRUCTION [None]
  - PERITONEAL CARCINOMA [None]
  - THROMBOCYTOPENIA [None]
